FAERS Safety Report 7032583-X (Version None)
Quarter: 2010Q4

REPORT INFORMATION
  Report Type: 
  Country: None (occurrence: None)
  Receive Date: 20101007
  Receipt Date: 20100928
  Transmission Date: 20110411
  Serious: Yes (Hospitalization, Other)
  Sender: FDA-Public Use
  Company Number: BR-ROCHE-716021

PATIENT
  Sex: Female
  Weight: 60 kg

DRUGS (6)
  1. BONIVA [Suspect]
     Indication: OSTEOPOROSIS
     Dosage: DOSE: 150 MG/TAB
     Route: 065
     Dates: start: 20100204
  2. TYLEX [Suspect]
     Dosage: DRUG: ^TILEX^, FREQUENCY: 2-3 TAB/DAY
     Route: 065
     Dates: start: 20100520
  3. OSCAL D [Concomitant]
     Indication: OSTEOPOROSIS
     Dates: start: 20100201
  4. ARAVA [Concomitant]
     Indication: RHEUMATOID ARTHRITIS
     Dates: start: 20000101
  5. PREDSIM [Concomitant]
     Indication: RHEUMATOID ARTHRITIS
     Dosage: FREQUENCY: 1/2 TAB/DAY
     Dates: start: 20060101
  6. LORAX [Concomitant]
     Indication: INSOMNIA
     Dates: start: 20100520

REACTIONS (8)
  - ABASIA [None]
  - BACK DISORDER [None]
  - BONE PAIN [None]
  - HYPERSENSITIVITY [None]
  - INFLAMMATION [None]
  - MOVEMENT DISORDER [None]
  - OSTEOPOROSIS [None]
  - PAIN [None]
